FAERS Safety Report 24940801 (Version 1)
Quarter: 2025Q1

REPORT INFORMATION
  Report Type: Report from Study
  Country: AE (occurrence: AE)
  Receive Date: 20250207
  Receipt Date: 20250207
  Transmission Date: 20250409
  Serious: Yes (Hospitalization)
  Sender: ALEXION PHARMACEUTICALS
  Company Number: AE-AstraZeneca-CH-00800391A

PATIENT

DRUGS (1)
  1. ACALABRUTINIB [Suspect]
     Active Substance: ACALABRUTINIB
     Indication: Chronic lymphocytic leukaemia
     Dosage: 100 MILLIGRAM, Q12H

REACTIONS (7)
  - Anaemia [Unknown]
  - Cellulitis [Unknown]
  - Dizziness [Unknown]
  - Dizziness [Unknown]
  - Essential hypertension [Unknown]
  - Pyrexia [Unknown]
  - Staphylococcal infection [Unknown]
